FAERS Safety Report 4467377-2 (Version None)
Quarter: 2004Q4

REPORT INFORMATION
  Report Type: 
  Country: None (occurrence: None)
  Receive Date: 20041004
  Receipt Date: 20040928
  Transmission Date: 20050328
  Serious: Yes (Other)
  Sender: FDA-Public Use
  Company Number: KII-2002-0003125

PATIENT
  Sex: Male

DRUGS (1)
  1. UNIPHYL [Suspect]

REACTIONS (1)
  - CEREBROVASCULAR ACCIDENT [None]
